FAERS Safety Report 12713138 (Version 1)
Quarter: 2016Q3

REPORT INFORMATION
  Report Type: Report from Study
  Country: US (occurrence: US)
  Receive Date: 20160902
  Receipt Date: 20160902
  Transmission Date: 20161109
  Serious: Yes (Hospitalization, Other)
  Sender: FDA-Public Use
  Company Number: US-ABBVIE-16K-163-1713565-00

PATIENT
  Sex: Female

DRUGS (1)
  1. HUMIRA [Suspect]
     Active Substance: ADALIMUMAB
     Indication: CROHN^S DISEASE
     Route: 058
     Dates: start: 201510

REACTIONS (4)
  - Enteritis [Recovered/Resolved]
  - Neoplasm malignant [Unknown]
  - Ulcer [Recovered/Resolved]
  - Postoperative adhesion [Unknown]

NARRATIVE: CASE EVENT DATE: 2015
